FAERS Safety Report 14710936 (Version 1)
Quarter: 2018Q2

REPORT INFORMATION
  Report Type: Spontaneous
  Country: FR (occurrence: FR)
  Receive Date: 20180403
  Receipt Date: 20180403
  Transmission Date: 20180711
  Serious: Yes (Other)
  Sender: FDA-Public Use
  Company Number: FR-JNJFOC-20180401444

PATIENT
  Age: 82 Year
  Sex: Female
  Weight: 81 kg

DRUGS (1)
  1. XARELTO [Suspect]
     Active Substance: RIVAROXABAN
     Indication: THROMBOSIS PROPHYLAXIS
     Route: 048
     Dates: start: 20171003, end: 20180222

REACTIONS (4)
  - Hepatitis [Not Recovered/Not Resolved]
  - Renal failure [Not Recovered/Not Resolved]
  - Cholestasis [Not Recovered/Not Resolved]
  - Jaundice [Not Recovered/Not Resolved]

NARRATIVE: CASE EVENT DATE: 20180222
